FAERS Safety Report 14028958 (Version 2)
Quarter: 2017Q4

REPORT INFORMATION
  Report Type: Spontaneous
  Country: US (occurrence: US)
  Receive Date: 20170930
  Receipt Date: 20171010
  Transmission Date: 20180321
  Serious: No
  Sender: FDA-Public Use
  Company Number: US-SA-2017SA098626

PATIENT
  Age: 65 Year
  Sex: Female

DRUGS (3)
  1. TYLENOL [Concomitant]
     Active Substance: ACETAMINOPHEN
     Dosage: EXTR TAB 500 MG
     Route: 065
  2. AUBAGIO [Suspect]
     Active Substance: TERIFLUNOMIDE
     Indication: MULTIPLE SCLEROSIS
     Route: 048
     Dates: start: 20170503
  3. CEPHALEXIN. [Concomitant]
     Active Substance: CEPHALEXIN
     Dosage: 250 MG
     Route: 065

REACTIONS (1)
  - Diarrhoea [Recovered/Resolved]

NARRATIVE: CASE EVENT DATE: 201705
